FAERS Safety Report 7525522-6 (Version None)
Quarter: 2011Q2

REPORT INFORMATION
  Report Type: 
  Country: None (occurrence: None)
  Receive Date: 20110606
  Receipt Date: 20110126
  Transmission Date: 20111010
  Serious: Yes (Hospitalization, Other)
  Sender: FDA-Public Use
  Company Number: US-BAYER-201027725NA

PATIENT
  Age: 43 Year
  Sex: Female
  Weight: 72.562 kg

DRUGS (5)
  1. YAZ [Suspect]
     Indication: ACNE
     Dosage: UNK UNK, UNK
     Route: 048
     Dates: start: 20080501, end: 20080701
  2. YAZ [Suspect]
     Indication: MENOPAUSAL SYMPTOMS
  3. MACROBID [Concomitant]
     Indication: URINARY TRACT INFECTION
  4. ANAPROX [Concomitant]
     Indication: COLPOSCOPY
  5. AMPICILLIN SODIUM [Concomitant]
     Indication: CELLULITIS
     Dosage: UNK
     Dates: start: 19930614

REACTIONS (4)
  - PULMONARY EMBOLISM [None]
  - DEEP VEIN THROMBOSIS [None]
  - PAIN [None]
  - ANXIETY [None]
